FAERS Safety Report 13339638 (Version 1)
Quarter: 2017Q1

REPORT INFORMATION
  Report Type: Spontaneous
  Country: US (occurrence: US)
  Receive Date: 20170315
  Receipt Date: 20170315
  Transmission Date: 20170428
  Serious: Yes (Life-Threatening)
  Sender: FDA-Public Use
  Company Number: US-ALLERGAN-1709650US

PATIENT
  Age: 86 Year
  Sex: Female

DRUGS (1)
  1. RESTASIS [Suspect]
     Active Substance: CYCLOSPORINE
     Indication: PRODUCT USED FOR UNKNOWN INDICATION
     Dosage: 2 GTT, Q12H
     Route: 047

REACTIONS (4)
  - Foreign body sensation in eyes [Unknown]
  - Coronary artery thrombosis [Unknown]
  - Eye pain [Unknown]
  - Lacrimation increased [Unknown]
